FAERS Safety Report 10732590 (Version 1)
Quarter: 2015Q1

REPORT INFORMATION
  Report Type: Spontaneous
  Country: AU (occurrence: None)
  Receive Date: 20150120
  Receipt Date: 20150120
  Transmission Date: 20150721
  Serious: Yes (Other)
  Sender: FDA-Public Use
  Company Number: 2015AU010969

PATIENT
  Age: 30 Year
  Sex: Male

DRUGS (1)
  1. ALOXI [Suspect]
     Active Substance: PALONOSETRON HYDROCHLORIDE
     Dosage: SINGLE
     Dates: start: 20141030, end: 20141030

REACTIONS (3)
  - Hypersensitivity [None]
  - Feeling of body temperature change [None]
  - Dry mouth [None]

NARRATIVE: CASE EVENT DATE: 20141030
